FAERS Safety Report 7484425-6 (Version None)
Quarter: 2011Q2

REPORT INFORMATION
  Report Type: 
  Country: None (occurrence: None)
  Receive Date: 20110509
  Receipt Date: 20110422
  Transmission Date: 20111010
  Serious: Yes (Hospitalization)
  Sender: FDA-Public Use
  Company Number: 031042

PATIENT
  Sex: Male

DRUGS (3)
  1. KEPPRA [Suspect]
     Dosage: (2500 MG ON DIALYSIS DAYS), (2000 MG ON THE DAYS HE DOSE NOT HAVE DIALYSIS)
  2. LAMICTAL [Concomitant]
  3. VALIUM [Concomitant]

REACTIONS (3)
  - LABORATORY TEST ABNORMAL [None]
  - ARTERIOVENOUS FISTULA SITE COMPLICATION [None]
  - HAEMORRHAGE [None]
